FAERS Safety Report 4731828-6 (Version None)
Quarter: 2005Q3

REPORT INFORMATION
  Report Type: 
  Country: None (occurrence: None)
  Receive Date: 20050802
  Receipt Date: 20050802
  Transmission Date: 20060218
  Serious: Yes (Other)
  Sender: FDA-Public Use
  Company Number: None

PATIENT
  Age: 31 Year
  Sex: Female
  Weight: 56.6996 kg

DRUGS (1)
  1. LARIAM [Suspect]
     Dosage: 1   WEEK   ORAL
     Route: 048

REACTIONS (9)
  - ABNORMAL DREAMS [None]
  - ANGER [None]
  - CIRCADIAN RHYTHM SLEEP DISORDER [None]
  - DEPRESSION [None]
  - DIZZINESS [None]
  - INSOMNIA [None]
  - MOOD ALTERED [None]
  - MOTION SICKNESS [None]
  - NAUSEA [None]
